FAERS Safety Report 25353793 (Version 1)
Quarter: 2025Q2

REPORT INFORMATION
  Report Type: Report from Study
  Country: CA (occurrence: CA)
  Receive Date: 20250523
  Receipt Date: 20250523
  Transmission Date: 20250716
  Serious: Yes (Hospitalization, Other)
  Sender: MYLAN
  Company Number: CA-PFIZER INC-2018441350

PATIENT
  Age: 64 Year
  Sex: Female

DRUGS (40)
  1. CELEBREX [Suspect]
     Active Substance: CELECOXIB
     Indication: Muscle strain
  2. CELEBREX [Suspect]
     Active Substance: CELECOXIB
  3. CELEBREX [Suspect]
     Active Substance: CELECOXIB
     Route: 065
  4. CELEBREX [Suspect]
     Active Substance: CELECOXIB
     Route: 065
  5. CELEBREX [Suspect]
     Active Substance: CELECOXIB
  6. CELEBREX [Suspect]
     Active Substance: CELECOXIB
  7. CELEBREX [Suspect]
     Active Substance: CELECOXIB
     Route: 065
  8. CELEBREX [Suspect]
     Active Substance: CELECOXIB
     Route: 065
  9. CELEBREX [Suspect]
     Active Substance: CELECOXIB
     Indication: Muscle strain
  10. CELEBREX [Suspect]
     Active Substance: CELECOXIB
     Route: 065
  11. CELEBREX [Suspect]
     Active Substance: CELECOXIB
     Route: 065
  12. CELEBREX [Suspect]
     Active Substance: CELECOXIB
  13. CODEINE [Suspect]
     Active Substance: CODEINE
     Indication: Product used for unknown indication
  14. CODEINE [Suspect]
     Active Substance: CODEINE
     Route: 065
  15. CODEINE [Suspect]
     Active Substance: CODEINE
     Route: 065
  16. CODEINE [Suspect]
     Active Substance: CODEINE
  17. SANDOSTATIN [Suspect]
     Active Substance: OCTREOTIDE ACETATE
     Indication: Metastatic carcinoid tumour
     Dosage: 20 MILLIGRAM, MONTHLY (1 EVERY 1 MONTHS)
     Route: 030
  18. SANDOSTATIN [Suspect]
     Active Substance: OCTREOTIDE ACETATE
     Dosage: 20 MILLIGRAM, MONTHLY (1 EVERY 1 MONTHS)
  19. SANDOSTATIN [Suspect]
     Active Substance: OCTREOTIDE ACETATE
     Dosage: 20 MILLIGRAM, MONTHLY (1 EVERY 1 MONTHS)
  20. SANDOSTATIN [Suspect]
     Active Substance: OCTREOTIDE ACETATE
     Dosage: 20 MILLIGRAM, MONTHLY (1 EVERY 1 MONTHS)
     Route: 030
  21. SANDOSTATIN [Suspect]
     Active Substance: OCTREOTIDE ACETATE
     Dosage: 20 MILLIGRAM, MONTHLY (1 EVERY 1 MONTHS)
     Route: 030
  22. SANDOSTATIN [Suspect]
     Active Substance: OCTREOTIDE ACETATE
     Dosage: 20 MILLIGRAM, MONTHLY (1 EVERY 1 MONTHS)
     Route: 030
  23. SANDOSTATIN [Suspect]
     Active Substance: OCTREOTIDE ACETATE
     Dosage: 20 MILLIGRAM, MONTHLY (1 EVERY 1 MONTHS)
  24. SANDOSTATIN [Suspect]
     Active Substance: OCTREOTIDE ACETATE
     Dosage: 20 MILLIGRAM, MONTHLY (1 EVERY 1 MONTHS)
  25. SANDOSTATIN [Suspect]
     Active Substance: OCTREOTIDE ACETATE
     Route: 030
  26. SANDOSTATIN [Suspect]
     Active Substance: OCTREOTIDE ACETATE
     Route: 030
  27. SANDOSTATIN [Suspect]
     Active Substance: OCTREOTIDE ACETATE
  28. SANDOSTATIN [Suspect]
     Active Substance: OCTREOTIDE ACETATE
  29. SANDOSTATIN [Suspect]
     Active Substance: OCTREOTIDE ACETATE
     Route: 030
  30. SANDOSTATIN [Suspect]
     Active Substance: OCTREOTIDE ACETATE
  31. SANDOSTATIN [Suspect]
     Active Substance: OCTREOTIDE ACETATE
  32. SANDOSTATIN [Suspect]
     Active Substance: OCTREOTIDE ACETATE
     Route: 030
  33. SANDOSTATIN LAR DEPOT [Suspect]
     Active Substance: OCTREOTIDE ACETATE
     Indication: Metastatic carcinoid tumour
     Dosage: 20 MILLIGRAM, MONTHLY
  34. SANDOSTATIN LAR DEPOT [Suspect]
     Active Substance: OCTREOTIDE ACETATE
     Dosage: 20 MILLIGRAM, MONTHLY
     Route: 030
  35. SANDOSTATIN LAR DEPOT [Suspect]
     Active Substance: OCTREOTIDE ACETATE
     Dosage: 20 MILLIGRAM, MONTHLY
     Route: 030
  36. SANDOSTATIN LAR DEPOT [Suspect]
     Active Substance: OCTREOTIDE ACETATE
     Dosage: 20 MILLIGRAM, MONTHLY
  37. PERINDOPRIL [Concomitant]
     Active Substance: PERINDOPRIL
     Indication: Blood pressure systolic increased
  38. PERINDOPRIL [Concomitant]
     Active Substance: PERINDOPRIL
     Route: 065
  39. PERINDOPRIL [Concomitant]
     Active Substance: PERINDOPRIL
     Route: 065
  40. PERINDOPRIL [Concomitant]
     Active Substance: PERINDOPRIL

REACTIONS (37)
  - Acne [Not Recovered/Not Resolved]
  - Back pain [Not Recovered/Not Resolved]
  - C-reactive protein increased [Not Recovered/Not Resolved]
  - Contusion [Not Recovered/Not Resolved]
  - Fall [Not Recovered/Not Resolved]
  - Feeling cold [Not Recovered/Not Resolved]
  - Feeling hot [Not Recovered/Not Resolved]
  - Haemoglobin decreased [Not Recovered/Not Resolved]
  - Influenza [Not Recovered/Not Resolved]
  - Injection site bruising [Not Recovered/Not Resolved]
  - Injection site haematoma [Not Recovered/Not Resolved]
  - Injection site haemorrhage [Not Recovered/Not Resolved]
  - Injection site mass [Not Recovered/Not Resolved]
  - Musculoskeletal discomfort [Not Recovered/Not Resolved]
  - Musculoskeletal pain [Not Recovered/Not Resolved]
  - Myalgia [Not Recovered/Not Resolved]
  - Nasopharyngitis [Not Recovered/Not Resolved]
  - Nervousness [Not Recovered/Not Resolved]
  - Pain [Not Recovered/Not Resolved]
  - Platelet count increased [Not Recovered/Not Resolved]
  - Scar [Not Recovered/Not Resolved]
  - Stress [Not Recovered/Not Resolved]
  - Arthralgia [Not Recovered/Not Resolved]
  - Muscle strain [Not Recovered/Not Resolved]
  - Spinal osteoarthritis [Not Recovered/Not Resolved]
  - Fatigue [Not Recovered/Not Resolved]
  - Food poisoning [Not Recovered/Not Resolved]
  - Abdominal pain [Not Recovered/Not Resolved]
  - Blood pressure increased [Not Recovered/Not Resolved]
  - Blood pressure systolic increased [Not Recovered/Not Resolved]
  - Cough [Not Recovered/Not Resolved]
  - Drug hypersensitivity [Not Recovered/Not Resolved]
  - Gamma-glutamyltransferase increased [Not Recovered/Not Resolved]
  - Haematocrit decreased [Not Recovered/Not Resolved]
  - Urticaria [Not Recovered/Not Resolved]
  - Therapeutic product effect delayed [Not Recovered/Not Resolved]
  - Product quality issue [Not Recovered/Not Resolved]
